FAERS Safety Report 6654036-0 (Version None)
Quarter: 2010Q1

REPORT INFORMATION
  Report Type: 
  Country: None (occurrence: None)
  Receive Date: 20100326
  Receipt Date: 20100313
  Transmission Date: 20100710
  Serious: Yes (Hospitalization, Other)
  Sender: FDA-Public Use
  Company Number: CA-ELI_LILLY_AND_COMPANY-CA201001001334

PATIENT
  Sex: Female
  Weight: 40.816 kg

DRUGS (3)
  1. FORTEO [Suspect]
     Indication: OSTEOPOROSIS
     Dosage: 20 UG, DAILY (1/D)
     Dates: start: 20091112, end: 20100308
  2. CALCIUM [Concomitant]
  3. VITAMIN D [Concomitant]

REACTIONS (8)
  - ANAEMIA [None]
  - DECREASED APPETITE [None]
  - GROIN PAIN [None]
  - HYPERCALCAEMIA [None]
  - MALAISE [None]
  - MULTIPLE MYELOMA [None]
  - NAUSEA [None]
  - WEIGHT DECREASED [None]
